FAERS Safety Report 7281989-2 (Version None)
Quarter: 2011Q1

REPORT INFORMATION
  Report Type: 
  Country: None (occurrence: None)
  Receive Date: 20110208
  Receipt Date: 20110203
  Transmission Date: 20110831
  Serious: Yes (Hospitalization)
  Sender: FDA-Public Use
  Company Number: JP-ABBOTT-11P-087-0703186-00

PATIENT
  Age: 72 Year
  Sex: Female

DRUGS (2)
  1. CLARITH TABLETS [Suspect]
     Route: 048
     Dates: start: 20110105, end: 20110201
  2. CLARITH TABLETS [Suspect]
     Indication: PRODUCT USED FOR UNKNOWN INDICATION
     Route: 048
     Dates: start: 20101210, end: 20110104

REACTIONS (1)
  - LUNG DISORDER [None]
